FAERS Safety Report 6516321-2 (Version None)
Quarter: 2009Q4

REPORT INFORMATION
  Report Type: 
  Country: None (occurrence: None)
  Receive Date: 20091223
  Receipt Date: 20091218
  Transmission Date: 20100525
  Serious: Yes (Hospitalization)
  Sender: FDA-Public Use
  Company Number: US-ASTRAZENECA-2009SE07199

PATIENT
  Age: 24142 Day
  Sex: Female
  Weight: 83.9 kg

DRUGS (1)
  1. ARIMIDEX [Suspect]
     Indication: BREAST CANCER
     Route: 048
     Dates: start: 20090713, end: 20090729

REACTIONS (3)
  - LIP SWELLING [None]
  - MOUTH ULCERATION [None]
  - PHARYNGEAL OEDEMA [None]
